FAERS Safety Report 13591396 (Version 3)
Quarter: 2017Q2

REPORT INFORMATION
  Report Type: Spontaneous
  Country: SA (occurrence: SA)
  Receive Date: 20170530
  Receipt Date: 20170621
  Transmission Date: 20170830
  Serious: Yes (Hospitalization, Congenital Anomaly, Other)
  Sender: FDA-Public Use
  Company Number: SA-009507513-1705SAU014844

PATIENT
  Sex: Male

DRUGS (1)
  1. DESOGESTREL (+) ETHINYL ESTRADIOL [Suspect]
     Active Substance: DESOGESTREL\ETHINYL ESTRADIOL
     Indication: PRODUCT USED FOR UNKNOWN INDICATION
     Dosage: UNK
     Route: 064

REACTIONS (14)
  - Congenital scoliosis [Unknown]
  - Spine malformation [Unknown]
  - Foetal exposure during pregnancy [Unknown]
  - Anal atresia [Unknown]
  - Premature baby [Unknown]
  - Congenital joint malformation [Unknown]
  - Meningomyelocele [Unknown]
  - Congenital genitourinary abnormality [Unknown]
  - Congenital ectopic bladder [Unknown]
  - Congenital genital malformation male [Unknown]
  - Spinal deformity [Unknown]
  - Congenital spinal cord anomaly [Unknown]
  - Exomphalos [Unknown]
  - Developmental hip dysplasia [Unknown]
